FAERS Safety Report 22022902 (Version 2)
Quarter: 2023Q1

REPORT INFORMATION
  Report Type: Spontaneous
  Country: US (occurrence: US)
  Receive Date: 20230222
  Receipt Date: 20230309
  Transmission Date: 20230418
  Serious: Yes (Other)
  Sender: FDA-Public Use
  Company Number: US-009507513-2302USA005850

PATIENT
  Age: 77 Year
  Sex: Male
  Weight: 88.435 kg

DRUGS (1)
  1. VERQUVO [Suspect]
     Active Substance: VERICIGUAT
     Indication: Peripheral arterial occlusive disease
     Dosage: 2.5 MILLIGRAM, QD
     Route: 048
     Dates: start: 20230131, end: 20230215

REACTIONS (7)
  - Cerebrovascular accident [Recovered/Resolved]
  - Hemiplegia [Unknown]
  - Seizure [Unknown]
  - Transient ischaemic attack [Unknown]
  - Asthenia [Recovered/Resolved]
  - Gait disturbance [Unknown]
  - Product use in unapproved indication [Unknown]

NARRATIVE: CASE EVENT DATE: 20230131
